FAERS Safety Report 14789415 (Version 1)
Quarter: 2018Q2

REPORT INFORMATION
  Report Type: Spontaneous
  Country: US (occurrence: US)
  Receive Date: 20180423
  Receipt Date: 20180423
  Transmission Date: 20180711
  Serious: No
  Sender: FDA-Public Use
  Company Number: US-TEVA-811539USA

PATIENT

DRUGS (1)
  1. PRAVASTATIN. [Suspect]
     Active Substance: PRAVASTATIN

REACTIONS (6)
  - Diarrhoea [Unknown]
  - Insomnia [Unknown]
  - Product size issue [Unknown]
  - Hypotension [Unknown]
  - Dizziness [Unknown]
  - Myalgia [Unknown]
